FAERS Safety Report 9299846 (Version 1)
Quarter: 2013Q1

REPORT INFORMATION
  Report Type: Spontaneous
  Country: US (occurrence: None)
  Receive Date: 20121109
  Receipt Date: 20121109
  Transmission Date: 20140127
  Serious: Yes (Other)
  Sender: FDA-Public Use
  Company Number: AUR-APL-2012-03089

PATIENT
  Age: 60 Year
  Sex: Female

DRUGS (4)
  1. AMOXICILLIN AND CLAVULANIC ACID [Suspect]
     Indication: URINARY TRACT INFECTION
     Dates: start: 20120716, end: 20120716
  2. LEVOFLOXACINE [Concomitant]
  3. ESTRADIOL (ESTRADIOL) (GEL) [Concomitant]
  4. METOPROLOL [Concomitant]

REACTIONS (5)
  - Rash erythematous [None]
  - Rash generalised [None]
  - Pruritus [None]
  - Skin tightness [None]
  - Blood urine present [None]
